FAERS Safety Report 11242918 (Version 1)
Quarter: 2015Q3

REPORT INFORMATION
  Report Type: Spontaneous
  Country: US (occurrence: None)
  Receive Date: 20150702
  Receipt Date: 20150702
  Transmission Date: 20151125
  Serious: Yes (Other)
  Sender: FDA-Public Use
  Company Number: 2015-11647

PATIENT
  Sex: Female

DRUGS (4)
  1. DORZOLAMIDE HYDROCHLORIDE (DORZOLAMIDE HYDROCHLORIDE) [Concomitant]
  2. BRIMONIDINE TARTRATE (BRIMONIDINE TARTRATE) [Concomitant]
     Active Substance: BRIMONIDINE TARTRATE
  3. AFLIBERCEPT [Suspect]
     Active Substance: AFLIBERCEPT
     Indication: NEOVASCULAR AGE-RELATED MACULAR DEGENERATION
     Route: 031
  4. TIMOLOL (TIMOLOL) (NONE) [Concomitant]
     Active Substance: TIMOLOL

REACTIONS (3)
  - Choroidal effusion [None]
  - Hypotony of eye [None]
  - Impaired healing [None]
